FAERS Safety Report 21728659 (Version 1)
Quarter: 2022Q4

REPORT INFORMATION
  Report Type: Report from Study
  Country: US (occurrence: US)
  Receive Date: 20221214
  Receipt Date: 20221214
  Transmission Date: 20230113
  Serious: No
  Sender: FDA-Public Use
  Company Number: US-ABBVIE-4197052

PATIENT
  Sex: Female

DRUGS (4)
  1. HUMIRA [Suspect]
     Active Substance: ADALIMUMAB
     Indication: Crohn^s disease
     Dosage: NAUSEA START DATE IS 2022?CITRATE FREE
     Route: 058
     Dates: start: 20220811
  2. Moderna [Concomitant]
     Indication: COVID-19 immunisation
     Dosage: ONE IN ONCE, FIRST DOSE
     Route: 030
     Dates: start: 202101, end: 202101
  3. Moderna [Concomitant]
     Indication: COVID-19 immunisation
     Dosage: ONE IN ONCE. SECOND DOSE
     Route: 030
     Dates: start: 202103, end: 202103
  4. Moderna [Concomitant]
     Indication: COVID-19 immunisation
     Dosage: ONE IN ONCE, THIRD DOSE
     Route: 030
     Dates: start: 20211023, end: 20211023

REACTIONS (1)
  - Nausea [Not Recovered/Not Resolved]
